FAERS Safety Report 5223300-4 (Version None)
Quarter: 2007Q1

REPORT INFORMATION
  Report Type: 
  Country: None (occurrence: None)
  Receive Date: 20070124
  Receipt Date: 20070105
  Transmission Date: 20070707
  Serious: Yes (Other)
  Sender: FDA-Public Use
  Company Number: 2007SP001025

PATIENT
  Age: 46 Year
  Sex: Female

DRUGS (2)
  1. PEG-INTRON [Suspect]
     Indication: HEPATITIS C
     Dosage: 80 MCG; QW; SC
     Route: 058
  2. REBETOL [Suspect]
     Indication: HEPATITIS
     Dosage: 400 MG;  BID; PO
     Route: 048

REACTIONS (8)
  - COGNITIVE DISORDER [None]
  - FATIGUE [None]
  - MYOSITIS [None]
  - NEUROPATHY [None]
  - OSTEOPENIA [None]
  - SARCOIDOSIS [None]
  - TENDONITIS [None]
  - VISUAL ACUITY REDUCED [None]
